FAERS Safety Report 25726971 (Version 1)
Quarter: 2025Q3

REPORT INFORMATION
  Report Type: Spontaneous
  Country: US (occurrence: None)
  Receive Date: 20250825
  Receipt Date: 20250825
  Transmission Date: 20251020
  Serious: Yes (Other)
  Sender: FDA-CTU
  Company Number: None

PATIENT
  Sex: Female

DRUGS (1)
  1. MINOXIDIL [Suspect]
     Active Substance: MINOXIDIL
     Indication: Alopecia

REACTIONS (9)
  - Pruritus [None]
  - Dilated pores [None]
  - Dizziness [None]
  - Joint swelling [None]
  - Hypoacusis [None]
  - Visual impairment [None]
  - Hair growth abnormal [None]
  - Abdominal discomfort [None]
  - Vomiting [None]

NARRATIVE: CASE EVENT DATE: 20250506
